FAERS Safety Report 8557302-7 (Version None)
Quarter: 2012Q3

REPORT INFORMATION
  Report Type: 
  Country: None (occurrence: None)
  Receive Date: 20120801
  Receipt Date: 20120725
  Transmission Date: 20120928
  Serious: Yes (Hospitalization, Other)
  Sender: FDA-Public Use
  Company Number: FR-PFIZER INC-2012179469

PATIENT
  Age: 31 Year
  Sex: Female

DRUGS (3)
  1. SULFASALAZINE [Suspect]
     Indication: RHEUMATOID ARTHRITIS
     Dosage: 500 MG, 4X/DAY
     Route: 048
     Dates: start: 20120521, end: 20120626
  2. ROXITHROMYCIN [Concomitant]
  3. TUSSIDANE [Concomitant]

REACTIONS (2)
  - PHARYNGITIS [None]
  - AGRANULOCYTOSIS [None]
